FAERS Safety Report 6940063-2 (Version None)
Quarter: 2010Q3

REPORT INFORMATION
  Report Type: 
  Country: None (occurrence: None)
  Receive Date: 20100825
  Receipt Date: 20100816
  Transmission Date: 20110219
  Serious: Yes (Hospitalization)
  Sender: FDA-Public Use
  Company Number: PHHY2010CN54200

PATIENT
  Age: 82 Year
  Sex: Male

DRUGS (1)
  1. DICLOFENAC SODIUM [Suspect]
     Dosage: EACH DAY
     Route: 048
     Dates: start: 20090820

REACTIONS (5)
  - DIVERTICULITIS [None]
  - DIVERTICULUM INTESTINAL [None]
  - FAECES DISCOLOURED [None]
  - HAEMATOCOELE [None]
  - LARGE INTESTINAL HAEMORRHAGE [None]
